FAERS Safety Report 15242936 (Version 1)
Quarter: 2018Q3

REPORT INFORMATION
  Report Type: Spontaneous
  Country: DE (occurrence: DE)
  Receive Date: 20180806
  Receipt Date: 20180806
  Transmission Date: 20181010
  Serious: Yes (Hospitalization)
  Sender: FDA-Public Use
  Company Number: DE-JNJFOC-20180803343

PATIENT
  Age: 77 Year
  Sex: Female
  Weight: 75 kg

DRUGS (7)
  1. XARELTO [Suspect]
     Active Substance: RIVAROXABAN
     Indication: PULMONARY EMBOLISM
     Route: 048
     Dates: start: 20170119
  2. ISMN [Concomitant]
     Active Substance: ISOSORBIDE MONONITRATE
     Route: 065
  3. XARELTO [Suspect]
     Active Substance: RIVAROXABAN
     Indication: PULMONARY EMBOLISM
     Route: 048
     Dates: start: 20150515
  4. CANDESARTAN. [Concomitant]
     Active Substance: CANDESARTAN
     Route: 065
  5. SIMVABETA [Concomitant]
     Active Substance: SIMVASTATIN
     Dosage: HS
     Route: 065
  6. INSULIN [Concomitant]
     Active Substance: INSULIN NOS
     Dosage: PRN
     Route: 065
  7. L?THYROXIN [Concomitant]
     Active Substance: LEVOTHYROXINE SODIUM
     Route: 065

REACTIONS (2)
  - Hypertensive crisis [Recovered/Resolved]
  - Atrioventricular block second degree [Recovered/Resolved]

NARRATIVE: CASE EVENT DATE: 20170114
